FAERS Safety Report 7946287-X (Version None)
Quarter: 2011Q4

REPORT INFORMATION
  Report Type: 
  Country: None (occurrence: None)
  Receive Date: 20111129
  Receipt Date: 20111118
  Transmission Date: 20120403
  Serious: Yes (Death, Life-Threatening, Hospitalization)
  Sender: FDA-Public Use
  Company Number: US-ROCHE-753985

PATIENT
  Sex: Female
  Weight: 73.548 kg

DRUGS (29)
  1. POTASSIUM CHLORIDE [Concomitant]
     Dosage: DRUG; POTASSIUM CHLORIDE 10 MEQ EXTENDED RELEASE.
  2. FLEXERIL [Concomitant]
     Dosage: AT BEDTIME. AS NEEDED.
     Route: 048
  3. BENADRYL [Concomitant]
     Dosage: AT BEDTIME. AS NEEDED.
     Route: 048
  4. CARDIZEM [Concomitant]
     Dosage: DRUG: CARDIZEM CD 240.
  5. ALBUTEROL [Concomitant]
     Dosage: MULTIDOSE INHALER TWO PUFFS. AS NEEDED.
  6. ASPIRIN [Concomitant]
     Route: 048
  7. COMPAZINE [Concomitant]
  8. FUROSEMIDE [Concomitant]
     Route: 048
  9. FISH OIL [Concomitant]
  10. ACTEMRA [Suspect]
     Route: 042
  11. ACTEMRA [Suspect]
     Route: 042
  12. ACTEMRA [Suspect]
     Route: 042
  13. PERCOCET [Concomitant]
     Dosage: 5/325 ONE TO TWO TABLETS EVERY FOUR HOUR FOR PAIN.
     Route: 048
  14. FOLIC ACID [Concomitant]
  15. ASCORBIC ACID [Concomitant]
  16. TRIAMTERENE AND HYDROCHLOROTHIAZIDE [Concomitant]
     Dosage: 25/37.5
  17. OMEPRAZOLE [Concomitant]
     Route: 048
  18. FLONASE [Concomitant]
     Dosage: DRUG: FLONASE 2 PUFFS. FREQUENCY: AS NEEDED.
  19. FENTANYL-100 [Concomitant]
  20. LUNESTA [Concomitant]
     Dosage: AT BEDTIME. AS NEEDED.
     Route: 048
  21. CELEBREX [Concomitant]
     Dosage: AS NEEDED.
     Route: 048
  22. ACTEMRA [Suspect]
     Route: 042
  23. PERCOCET [Concomitant]
     Dosage: DRUG: PERCOCET 10/325, ONE ORAL TWICE DAILY.
     Route: 048
  24. PRAVASTATIN [Concomitant]
     Dosage: AT BEDTIME.
     Route: 048
  25. ADVAIR DISKUS 100/50 [Concomitant]
     Dosage: 500/50.
  26. ACTEMRA [Suspect]
     Indication: RHEUMATOID ARTHRITIS
     Dosage: FORM: INFUSION.
     Route: 042
     Dates: start: 20100622, end: 20111011
  27. PREMPRO [Concomitant]
     Dosage: 0.625/2.5 ONE DAILY.
     Route: 048
  28. CALCIUM/VITAMIN D [Concomitant]
     Dosage: DRUG: CALCIUM WITH VITAMIN D 500/200.
     Route: 048
  29. LEFLUNOMIDE [Concomitant]

REACTIONS (3)
  - MYOCARDIAL INFARCTION [None]
  - ACUTE CORONARY SYNDROME [None]
  - CARDIAC FAILURE CONGESTIVE [None]
